FAERS Safety Report 13949610 (Version 3)
Quarter: 2017Q4

REPORT INFORMATION
  Report Type: Spontaneous
  Country: JP (occurrence: JP)
  Receive Date: 20170908
  Receipt Date: 20171018
  Transmission Date: 20180320
  Serious: Yes (Death, Other)
  Sender: FDA-Public Use
  Company Number: JP-PFIZER INC-2017388616

PATIENT
  Age: 96 Year
  Sex: Female

DRUGS (1)
  1. SELARA 25MG [Suspect]
     Active Substance: EPLERENONE
     Indication: CARDIAC FAILURE
     Dosage: 25 MG, DAILY
     Route: 048
     Dates: start: 20170801, end: 20170809

REACTIONS (6)
  - Cystitis haemorrhagic [Unknown]
  - Bacteraemia [Fatal]
  - Colitis ischaemic [Unknown]
  - Embolism [Unknown]
  - Pneumonia aspiration [Fatal]
  - Endotoxic shock [Fatal]

NARRATIVE: CASE EVENT DATE: 20170818
